FAERS Safety Report 10640684 (Version 2)
Quarter: 2014Q4

REPORT INFORMATION
  Report Type: Report from Study
  Country: US (occurrence: US)
  Receive Date: 20141209
  Receipt Date: 20141209
  Transmission Date: 20150529
  Serious: Yes (Hospitalization)
  Sender: FDA-Public Use
  Company Number: US-ACTELION-A-US2013-92532

PATIENT
  Age: 55 Year
  Sex: Female

DRUGS (6)
  1. VELETRI [Suspect]
     Active Substance: EPOPROSTENOL
     Indication: PULMONARY ARTERIAL HYPERTENSION
     Dosage: 26 NG/KG, PER MIN
     Route: 042
     Dates: start: 2013
  2. VELETRI [Suspect]
     Active Substance: EPOPROSTENOL
     Dosage: 24 NG/KG, PER MIN
     Route: 042
     Dates: start: 20131202
  3. PREDNISONE. [Concomitant]
     Active Substance: PREDNISONE
     Dosage: 5 MG, QD
  4. VELETRI [Suspect]
     Active Substance: EPOPROSTENOL
     Dosage: 28 NG/KG, PER MIN
     Route: 042
     Dates: start: 20131204
  5. REVATIO [Concomitant]
     Active Substance: SILDENAFIL CITRATE
     Dosage: 80 MG, TID
  6. LASIX [Concomitant]
     Active Substance: FUROSEMIDE
     Dosage: 20 MG, BID

REACTIONS (32)
  - Catheter site swelling [Recovered/Resolved]
  - Catheter site pain [Recovered/Resolved]
  - Catheter site pruritus [Recovered/Resolved]
  - Dyspnoea [Unknown]
  - Pruritus [Unknown]
  - Malaise [Unknown]
  - Productive cough [Unknown]
  - Catheter site discharge [Recovered/Resolved]
  - Catheter site haematoma [Unknown]
  - Fatigue [Unknown]
  - Nasopharyngitis [Unknown]
  - Gait disturbance [Unknown]
  - Pain in jaw [Unknown]
  - Diarrhoea [Recovered/Resolved]
  - Vomiting [Recovered/Resolved]
  - Malaise [Unknown]
  - Sluggishness [Unknown]
  - Ear discomfort [Unknown]
  - Wheezing [Unknown]
  - Pain in extremity [Unknown]
  - Chills [Unknown]
  - Back pain [Unknown]
  - Headache [Recovered/Resolved]
  - Pain [Recovered/Resolved]
  - Dyspnoea exertional [Unknown]
  - Weight decreased [Unknown]
  - Device leakage [Recovered/Resolved]
  - Catheter site urticaria [Recovered/Resolved]
  - Catheter site related reaction [Recovered/Resolved]
  - Nausea [Recovered/Resolved]
  - Abdominal pain lower [Recovered/Resolved]
  - Decreased appetite [Unknown]

NARRATIVE: CASE EVENT DATE: 20140227
